FAERS Safety Report 12375940 (Version 1)
Quarter: 2016Q2

REPORT INFORMATION
  Report Type: Spontaneous
  Country: US (occurrence: None)
  Receive Date: 20160516
  Receipt Date: 20160516
  Transmission Date: 20160815
  Serious: Yes (Other)
  Sender: FDA-Public Use
  Company Number: None

PATIENT
  Age: 50 Year
  Sex: Female
  Weight: 72.58 kg

DRUGS (15)
  1. TESTOSRONE [Concomitant]
  2. MULTI VITAMIN [Concomitant]
     Active Substance: VITAMINS
  3. MEGA FOOD HAIR SKIN NAILS [Concomitant]
  4. CYCLOSPORINE. [Concomitant]
     Active Substance: CYCLOSPORINE
  5. GENERIC SINGULAR [Concomitant]
  6. XOLAIR [Suspect]
     Active Substance: OMALIZUMAB
     Indication: ECZEMA
     Dosage: ONCE EVERY 4 WEEKS INJECTED INTO THE ARM
     Dates: start: 20160303, end: 20160331
  7. VITAMIN D [Concomitant]
     Active Substance: CHOLECALCIFEROL
  8. OMEGA 3 [Concomitant]
     Active Substance: OMEGA-3 FATTY ACIDS
  9. HORMONE VIVELLE [Concomitant]
  10. VIVISCAL [Concomitant]
  11. PROBIOTIC [Concomitant]
     Active Substance: PROBIOTICS NOS
  12. XOLAIR [Suspect]
     Active Substance: OMALIZUMAB
     Indication: ASTHMA
     Dosage: ONCE EVERY 4 WEEKS INJECTED INTO THE ARM
     Dates: start: 20160303, end: 20160331
  13. XOLAIR [Suspect]
     Active Substance: OMALIZUMAB
     Indication: URTICARIA
     Dosage: ONCE EVERY 4 WEEKS INJECTED INTO THE ARM
     Dates: start: 20160303, end: 20160331
  14. DOXEPIN [Concomitant]
     Active Substance: DOXEPIN
  15. ALLEGRA [Concomitant]
     Active Substance: FEXOFENADINE HYDROCHLORIDE

REACTIONS (1)
  - Alopecia [None]

NARRATIVE: CASE EVENT DATE: 20160403
